FAERS Safety Report 9522776 (Version 1)
Quarter: 2013Q1

REPORT INFORMATION
  Report Type: Spontaneous
  Country: US (occurrence: None)
  Receive Date: 20130305
  Receipt Date: 20130305
  Transmission Date: 20140127
  Serious: Yes (Hospitalization, Other)
  Sender: FDA-Public Use
  Company Number: 163-21880-12020066

PATIENT
  Age: 85 Year
  Sex: Male

DRUGS (9)
  1. REVLIMID (LENALIDOMIDE) (25 MILLIGRAM, CAPSULES) [Suspect]
     Indication: PLASMA CELL MYELOMA
     Dosage: 25 MG, 1 IN 1 D, PO
     Route: 048
     Dates: start: 20110427, end: 201107
  2. SYNTHROID (LEVOTHYROXINE SODIUM) (UNKNOWN) [Concomitant]
  3. PROSCAR (FINASTERIDE) (UNKNOWN) [Concomitant]
  4. NARVASC (AMLODIPINE BESILATE) (UNKNOWN) [Concomitant]
  5. FLOMAX (TAMSULOSIN HYDROCHLORIDE) (UNKNOWN) [Concomitant]
  6. DEXAMETHASONE (DEXAMETHASONE) (UNKNOWN) [Concomitant]
  7. NOVOLOG (INSULIN ASPART) [Concomitant]
  8. VICODIN (VICODIN) (UNKNOWN) [Concomitant]
  9. OMEPRAZOLE (OMEPRAZOLE) (UNKNOWN) [Concomitant]

REACTIONS (3)
  - Deep vein thrombosis [None]
  - Hypotension [None]
  - Diarrhoea [None]
